FAERS Safety Report 5932825-5 (Version None)
Quarter: 2008Q4

REPORT INFORMATION
  Report Type: 
  Country: None (occurrence: None)
  Receive Date: 20081027
  Receipt Date: 20081027
  Transmission Date: 20090506
  Serious: No
  Sender: FDA-Public Use
  Company Number: None

PATIENT
  Sex: Male
  Weight: 79.09 kg

DRUGS (4)
  1. FLUOROURACIL [Suspect]
     Dosage: 4032 MG
     Dates: end: 20081007
  2. BEVACIZUMAB (RHUMAB VEGF) [Suspect]
     Dosage: 395.4 MG
     Dates: end: 20081007
  3. LEUCOVORIN CALCIUM [Suspect]
     Dosage: 720 MG
     Dates: end: 20081007
  4. ELOXATIN [Suspect]
     Dosage: 117 MG
     Dates: end: 20081007

REACTIONS (2)
  - ABDOMINAL PAIN LOWER [None]
  - CONSTIPATION [None]
